FAERS Safety Report 17159012 (Version 6)
Quarter: 2025Q4

REPORT INFORMATION
  Report Type: Report from Study
  Country: US (occurrence: US)
  Receive Date: 20191216
  Receipt Date: 20251024
  Transmission Date: 20260117
  Serious: Yes (Other)
  Sender: PFIZER
  Company Number: US-PFIZER INC-2019458682

PATIENT
  Age: 47 Year
  Sex: Female

DRUGS (7)
  1. IBRANCE [Suspect]
     Active Substance: PALBOCICLIB
     Indication: Breast cancer metastatic
     Dosage: ORAL CAPSULE ONCE DAILY FOR 21 DAYS ON 7 DAYS OFF
     Route: 048
     Dates: start: 2019
  2. IBRANCE [Suspect]
     Active Substance: PALBOCICLIB
     Dosage: 100 MG, CYCLIC (ONCE A DAY/100MG DAILY X 21 DAYS, THEN 7 DAYS OFF)
     Route: 048
     Dates: start: 20191002
  3. IBRANCE [Suspect]
     Active Substance: PALBOCICLIB
     Dosage: 100 MG, CYCLIC (100 MG EVERY DAY FOR X 21 DAYS ON, THEN 7 DAYS OFF)
     Route: 048
     Dates: start: 20200129
  4. IBRANCE [Suspect]
     Active Substance: PALBOCICLIB
     Dosage: 125 MG, CYCLIC (21 DAYS ON, 7 DAYS OFF)
  5. IBRANCE [Suspect]
     Active Substance: PALBOCICLIB
     Dosage: 75 MG, CYCLIC (ONCE DAILY FOR 21 DAYS ON 7 DAYS OFF)
     Route: 048
  6. FEMARA [Concomitant]
     Active Substance: LETROZOLE
     Dosage: UNK
  7. LETROZOLE [Concomitant]
     Active Substance: LETROZOLE
     Dosage: UNK

REACTIONS (21)
  - Myelosuppression [Recovering/Resolving]
  - White blood cell count decreased [Unknown]
  - Stomatitis [Recovered/Resolved]
  - Nausea [Not Recovered/Not Resolved]
  - Faeces soft [Recovering/Resolving]
  - Nasopharyngitis [Recovered/Resolved]
  - Hot flush [Unknown]
  - Alopecia [Unknown]
  - Nail disorder [Not Recovered/Not Resolved]
  - Onychoclasis [Unknown]
  - Headache [Recovered/Resolved]
  - Laboratory test abnormal [Unknown]
  - Weight decreased [Recovering/Resolving]
  - Illness [Unknown]
  - Cough [Recovering/Resolving]
  - Paranasal sinus hypersecretion [Unknown]
  - Memory impairment [Unknown]
  - Migraine [Unknown]
  - Eye disorder [Recovering/Resolving]
  - Decreased appetite [Unknown]
  - COVID-19 [Recovered/Resolved]

NARRATIVE: CASE EVENT DATE: 20190101
